FAERS Safety Report 9347450 (Version 3)
Quarter: 2014Q2

REPORT INFORMATION
  Report Type: Spontaneous
  Country: US (occurrence: US)
  Receive Date: 20130614
  Receipt Date: 20140404
  Transmission Date: 20141212
  Serious: Yes (Death, Hospitalization, Other)
  Sender: FDA-Public Use
  Company Number: US-B.I. PHARMACEUTICALS,INC./RIDGEFIELD-2013-BI-16582BP

PATIENT
  Age: 79 Year
  Sex: Male
  Weight: 124.7 kg

DRUGS (20)
  1. PRADAXA [Suspect]
     Indication: CEREBROVASCULAR ACCIDENT PROPHYLAXIS
     Dosage: 150 MG
     Route: 065
     Dates: start: 20120109, end: 20120324
  2. PRADAXA [Suspect]
     Indication: THROMBOSIS PROPHYLAXIS
  3. ZYPREXA [Concomitant]
     Dosage: 10 MG
     Route: 065
  4. FLAGYL [Concomitant]
     Dosage: 500 MG
     Route: 065
  5. KCL [Concomitant]
     Route: 065
  6. AVODART [Concomitant]
     Dosage: 0.5 MG
     Route: 065
  7. FOLIC ACID [Concomitant]
     Dosage: 1 MG
     Route: 065
  8. ZOCOR [Concomitant]
     Dosage: 10 MG
     Route: 065
  9. ZANTAC [Concomitant]
     Dosage: 300 MG
     Route: 065
  10. FLUDROCORTISONE [Concomitant]
     Dosage: 0.1 MG
     Route: 065
  11. SPIRONOLACTONE [Concomitant]
     Route: 065
  12. MIDODRINE [Concomitant]
     Dosage: 10 MG
     Route: 065
  13. ALBUTEROL [Concomitant]
     Route: 065
  14. LEVOTHYROXINE [Concomitant]
     Dosage: 15 MCG
     Route: 065
  15. LASIX [Concomitant]
     Dosage: 40 MG
     Route: 065
  16. ASPIRIN [Concomitant]
     Dosage: 81 MG
     Route: 065
  17. NOVOLOG [Concomitant]
     Route: 065
  18. LANTUS [Concomitant]
     Dosage: 15 U
     Route: 058
  19. LOVENOX [Concomitant]
     Route: 065
  20. BUDESONIDE [Concomitant]
     Dosage: 2 PUF
     Route: 065

REACTIONS (7)
  - Lower gastrointestinal haemorrhage [Fatal]
  - Intestinal obstruction [Fatal]
  - Sepsis [Fatal]
  - Hallucination [Unknown]
  - Renal failure acute [Unknown]
  - Fall [Unknown]
  - Head injury [Unknown]
